FAERS Safety Report 7381329-4 (Version None)
Quarter: 2011Q1

REPORT INFORMATION
  Report Type: 
  Country: None (occurrence: None)
  Receive Date: 20110323
  Receipt Date: 20110323
  Transmission Date: 20110831
  Serious: Yes (Hospitalization)
  Sender: FDA-Public Use
  Company Number: None

PATIENT
  Age: 64 Year
  Sex: Male
  Weight: 72 kg

DRUGS (1)
  1. FILGRASTIM [Suspect]
     Dates: start: 20100809, end: 20100826

REACTIONS (4)
  - STAPHYLOCOCCAL INFECTION [None]
  - ABSCESS [None]
  - PYODERMA GANGRENOSUM [None]
  - CONDITION AGGRAVATED [None]
